FAERS Safety Report 8373435-2 (Version None)
Quarter: 2012Q2

REPORT INFORMATION
  Report Type: 
  Country: None (occurrence: None)
  Receive Date: 20120521
  Receipt Date: 20120207
  Transmission Date: 20120825
  Serious: No
  Sender: FDA-Public Use
  Company Number: US-TEVA-2011006020

PATIENT
  Sex: Female
  Weight: 85.806 kg

DRUGS (6)
  1. MULTI-VITAMIN [Concomitant]
  2. ALLOPURINOL [Suspect]
     Dates: start: 20111104, end: 20111128
  3. DULOXETINE HYDROCHLORIDE [Concomitant]
  4. MELOXICAM [Concomitant]
  5. PANTOPRAZOLE [Concomitant]
  6. TREANDA [Suspect]
     Indication: CHRONIC LYMPHOCYTIC LEUKAEMIA
     Dosage: CYCLIC
     Route: 042
     Dates: start: 20111107, end: 20111108

REACTIONS (2)
  - RASH PRURITIC [None]
  - RASH MACULAR [None]
